FAERS Safety Report 4327000-4 (Version None)
Quarter: 2004Q1

REPORT INFORMATION
  Report Type: 
  Country: None (occurrence: None)
  Receive Date: 20040322
  Receipt Date: 20031204
  Transmission Date: 20041129
  Serious: No
  Sender: FDA-Public Use
  Company Number: US-JNJFOC-20031201823

PATIENT
  Age: 26 Year
  Sex: Female

DRUGS (2)
  1. ORTHO TRI-CYCLEN LO [Suspect]
     Indication: CONTRACEPTION
     Dosage: 1 DOSE(S), 1 IN 1 DAY, ORAL
     Route: 048
     Dates: start: 20031120
  2. CELEBREX [Concomitant]

REACTIONS (4)
  - DYSMENORRHOEA [None]
  - FUNGAL INFECTION [None]
  - METRORRHAGIA [None]
  - MOOD SWINGS [None]
